FAERS Safety Report 6335433-X (Version None)
Quarter: 2009Q3

REPORT INFORMATION
  Report Type: 
  Country: None (occurrence: None)
  Receive Date: 20090831
  Receipt Date: 20090820
  Transmission Date: 20100115
  Serious: Yes (Hospitalization)
  Sender: FDA-Public Use
  Company Number: CH-ASTRAZENECA-2009SE09380

PATIENT
  Age: 83 Year
  Sex: Female
  Weight: 92 kg

DRUGS (8)
  1. NEXIUM [Suspect]
     Indication: PROPHYLAXIS
     Route: 048
     Dates: start: 20090723, end: 20090727
  2. CIPRALEX [Suspect]
     Indication: DEPRESSION
     Route: 048
     Dates: start: 20090605, end: 20090727
  3. ACTOS [Suspect]
     Indication: TYPE 2 DIABETES MELLITUS
     Route: 048
     Dates: end: 20090723
  4. SIMCORA [Concomitant]
     Route: 048
  5. TOROM [Concomitant]
     Route: 048
  6. LISINOPRIL [Concomitant]
     Route: 048
  7. ASPIRIN [Concomitant]
  8. FOSAMAX [Concomitant]
     Indication: OSTEOPOROSIS
     Route: 048

REACTIONS (5)
  - BRADYCARDIA [None]
  - CARDIAC FAILURE [None]
  - DYSPNOEA [None]
  - ELECTROCARDIOGRAM QT INTERVAL ABNORMAL [None]
  - TORSADE DE POINTES [None]
